FAERS Safety Report 24594585 (Version 2)
Quarter: 2024Q4

REPORT INFORMATION
  Report Type: Spontaneous
  Country: AU (occurrence: AU)
  Receive Date: 20241108
  Receipt Date: 20241205
  Transmission Date: 20250115
  Serious: Yes (Death, Other)
  Sender: IPSEN BIOPHARMACEUTICALS, INC.
  Company Number: AU-IPSEN Group, Research and Development-2024-22118

PATIENT
  Age: 46 Year
  Sex: Female

DRUGS (1)
  1. LANREOTIDE ACETATE [Suspect]
     Active Substance: LANREOTIDE ACETATE
     Indication: Multiple endocrine neoplasia Type 1
     Route: 058

REACTIONS (3)
  - Respiratory failure [Fatal]
  - Malignant neoplasm progression [Unknown]
  - Treatment noncompliance [Unknown]
